FAERS Safety Report 7714597-7 (Version None)
Quarter: 2011Q3

REPORT INFORMATION
  Report Type: 
  Country: None (occurrence: None)
  Receive Date: 20110829
  Receipt Date: 20110823
  Transmission Date: 20111222
  Serious: No
  Sender: FDA-Public Use
  Company Number: US-PFIZER INC-2011160026

PATIENT
  Sex: Female

DRUGS (3)
  1. TOVIAZ [Suspect]
     Indication: URINARY INCONTINENCE
     Dosage: 4 MG, 1X/DAY
     Route: 048
     Dates: start: 20110601
  2. ZOCOR [Concomitant]
     Dosage: UNK
  3. PREMARIN [Concomitant]
     Dosage: UNK

REACTIONS (2)
  - DRUG EFFECT DECREASED [None]
  - RASH [None]
